FAERS Safety Report 4658797-1 (Version None)
Quarter: 2005Q2

REPORT INFORMATION
  Report Type: 
  Country: None (occurrence: None)
  Receive Date: 20050510
  Receipt Date: 20050510
  Transmission Date: 20051028
  Serious: Yes (Hospitalization, Other)
  Sender: FDA-Public Use
  Company Number: None

PATIENT
  Sex: Female
  Weight: 48 kg

DRUGS (20)
  1. CYTARABINE [Suspect]
     Dosage: 100 MG/M2 DAY CIV ON DAYS 1-7
     Dates: start: 20040309, end: 20040315
  2. DAUNOMYCIN [Suspect]
     Dosage: 90 MG/M2 IV OVER 5-10 MIN ON DAYS 1,2, AND 3
     Route: 042
     Dates: end: 20040311
  3. ETOPOSIDE [Suspect]
     Dosage: 100 MG/M2 IV OVER 2 HOURS ON DAYS 1, 2, AND 3
     Route: 042
  4. ACTIGALL [Concomitant]
  5. ACYCLOVIR [Concomitant]
  6. ALDACTONE [Concomitant]
  7. AMIKACIN [Concomitant]
  8. AMPHOTERICIN B [Concomitant]
  9. BACTRIM [Concomitant]
  10. CASPOFUNGIN [Concomitant]
  11. CAPTOPRIL [Concomitant]
  12. IV FLUIDS [Concomitant]
  13. IMIPENIN [Concomitant]
  14. LASIX [Concomitant]
  15. LOPRESSOR [Concomitant]
  16. MEROPENEM [Concomitant]
  17. NOREPINEPHRINE [Concomitant]
  18. PHOSFLO [Concomitant]
  19. SPIRONOLACTONE [Concomitant]
  20. VANCOMYCIN [Concomitant]

REACTIONS (10)
  - BLOOD BILIRUBIN INCREASED [None]
  - CARDIAC FAILURE CONGESTIVE [None]
  - EJECTION FRACTION DECREASED [None]
  - FEBRILE NEUTROPENIA [None]
  - HAEMODIALYSIS [None]
  - HYPOTENSION [None]
  - LOBAR PNEUMONIA [None]
  - OEDEMA PERIPHERAL [None]
  - RENAL FAILURE [None]
  - RESPIRATORY DISORDER [None]
